FAERS Safety Report 5913854-4 (Version None)
Quarter: 2008Q4

REPORT INFORMATION
  Report Type: 
  Country: None (occurrence: None)
  Receive Date: 20081009
  Receipt Date: 20081001
  Transmission Date: 20090506
  Serious: Yes (Other)
  Sender: FDA-Public Use
  Company Number: A0750867A

PATIENT
  Age: 41 Year
  Sex: Female

DRUGS (4)
  1. COMBIVIR [Suspect]
     Indication: HIV INFECTION
     Route: 048
     Dates: start: 20080917, end: 20080918
  2. KALETRA [Concomitant]
     Indication: HIV INFECTION
     Route: 048
     Dates: start: 20080917, end: 20080918
  3. VIRACEPT [Concomitant]
     Indication: VIRAL INFECTION
     Dosage: 2500MG PER DAY
     Route: 048
     Dates: start: 20070111, end: 20080828
  4. TRUVADA [Concomitant]
     Indication: VIRAL INFECTION
     Route: 048
     Dates: start: 20070111, end: 20080828

REACTIONS (2)
  - ABORTION SPONTANEOUS [None]
  - DRUG EXPOSURE DURING PREGNANCY [None]
